FAERS Safety Report 10008443 (Version 3)
Quarter: 2015Q3

REPORT INFORMATION
  Report Type: Spontaneous
  Country: US (occurrence: US)
  Receive Date: 20140313
  Receipt Date: 20150814
  Transmission Date: 20151125
  Serious: No
  Sender: FDA-Public Use
  Company Number: US-GILEAD-2013-0075510

PATIENT
  Age: 44 Year
  Sex: Female

DRUGS (5)
  1. LETAIRIS [Suspect]
     Active Substance: AMBRISENTAN
     Indication: PULMONARY HYPERTENSION
     Dosage: 5 MG, QD
     Dates: start: 20110209
  2. LETAIRIS [Suspect]
     Active Substance: AMBRISENTAN
     Indication: SUBSTANCE ABUSE
  3. LETAIRIS [Suspect]
     Active Substance: AMBRISENTAN
     Indication: EXPOSURE TO TOXIC AGENT
     Dosage: UNK
     Dates: start: 20130521
  4. TRACLEER [Concomitant]
     Active Substance: BOSENTAN
     Indication: PRODUCT USED FOR UNKNOWN INDICATION
  5. LETAIRIS [Suspect]
     Active Substance: AMBRISENTAN
     Indication: DRUG ABUSE
     Dosage: UNK
     Dates: start: 20130402, end: 20130508

REACTIONS (1)
  - Hepatic enzyme increased [Unknown]
